FAERS Safety Report 10410026 (Version 1)
Quarter: 2014Q3

REPORT INFORMATION
  Report Type: Spontaneous
  Country: CA (occurrence: CA)
  Receive Date: 20140826
  Receipt Date: 20140826
  Transmission Date: 20150326
  Serious: Yes (Hospitalization)
  Sender: FDA-Public Use
  Company Number: PHHY2014CA105861

PATIENT
  Sex: Male

DRUGS (5)
  1. MORPHINE [Suspect]
     Active Substance: MORPHINE
     Dosage: 150 UG, UNK
     Route: 064
  2. FENTANYL. [Suspect]
     Active Substance: FENTANYL
     Dosage: 15 UG, UNK
     Route: 064
  3. DOXYLAMINE [Suspect]
     Active Substance: DOXYLAMINE
     Route: 064
  4. ONDANSETRON [Suspect]
     Active Substance: ONDANSETRON
     Route: 064
  5. BUPIVACAINE [Suspect]
     Active Substance: BUPIVACAINE
     Route: 064

REACTIONS (4)
  - Lip ulceration [Recovered/Resolved]
  - Oral disorder [Recovered/Resolved]
  - Oral herpes [Recovered/Resolved]
  - Foetal exposure during pregnancy [Unknown]
